FAERS Safety Report 7390588-3 (Version None)
Quarter: 2011Q2

REPORT INFORMATION
  Report Type: 
  Country: None (occurrence: None)
  Receive Date: 20110404
  Receipt Date: 20110323
  Transmission Date: 20111010
  Serious: Yes (Hospitalization)
  Sender: FDA-Public Use
  Company Number: US-BIOGENIDEC-2011BI011427

PATIENT
  Age: 44 Year
  Sex: Female

DRUGS (3)
  1. STEROIDS (NOS) [Concomitant]
     Route: 042
  2. TYSABRI [Suspect]
     Route: 042
     Dates: start: 20101110
  3. TYSABRI [Suspect]
     Indication: MULTIPLE SCLEROSIS
     Route: 042
     Dates: start: 20070123, end: 20100524

REACTIONS (3)
  - NEURALGIA [None]
  - COLON CANCER [None]
  - MUSCULOSKELETAL STIFFNESS [None]
